FAERS Safety Report 12188455 (Version 3)
Quarter: 2016Q3

REPORT INFORMATION
  Report Type: Report from Study
  Country: JP (occurrence: JP)
  Receive Date: 20160317
  Receipt Date: 20160831
  Transmission Date: 20161109
  Serious: Yes (Other)
  Sender: FDA-Public Use
  Company Number: JP-INCYTE CORPORATION-2016IN001503

PATIENT
  Age: 70 Year
  Sex: Female
  Weight: 54 kg

DRUGS (9)
  1. IRRADIATED RED BLOOD CELLS-LEUKOCYTES REDUCED [Concomitant]
     Dosage: 2 IU, UNK
     Route: 065
     Dates: start: 20150109, end: 20150109
  2. IRRADIATED RED BLOOD CELLS-LEUKOCYTES REDUCED [Concomitant]
     Dosage: 2 IU, UNK
     Route: 065
     Dates: start: 20150227, end: 20150227
  3. IRRADIATED RED BLOOD CELLS-LEUKOCYTES REDUCED [Concomitant]
     Dosage: 2 IU, UNK
     Route: 065
     Dates: start: 20150313, end: 20150313
  4. JAKAFI [Suspect]
     Active Substance: RUXOLITINIB
     Indication: PRIMARY MYELOFIBROSIS
     Dosage: 10 MG, BID
     Route: 048
     Dates: start: 20150116, end: 20150521
  5. JAKAFI [Suspect]
     Active Substance: RUXOLITINIB
     Dosage: 15 MG, BID
     Route: 048
     Dates: start: 20150522, end: 20150924
  6. JAKAFI [Suspect]
     Active Substance: RUXOLITINIB
     Dosage: 10 MG, BID
     Route: 048
     Dates: start: 20150925
  7. IRRADIATED RED BLOOD CELLS-LEUKOCYTES REDUCED [Concomitant]
     Indication: PRIMARY MYELOFIBROSIS
     Dosage: 4 IU, UNK
     Route: 065
     Dates: start: 20150104, end: 20150104
  8. IRRADIATED RED BLOOD CELLS-LEUKOCYTES REDUCED [Concomitant]
     Indication: ANAEMIA
     Dosage: 2 IU, UNK
     Route: 065
     Dates: start: 20150105, end: 20150105
  9. IRRADIATED RED BLOOD CELLS-LEUKOCYTES REDUCED [Concomitant]
     Dosage: 2 IU, UNK
     Route: 065
     Dates: start: 20150213, end: 20150213

REACTIONS (3)
  - Anaemia [Recovering/Resolving]
  - Blood alkaline phosphatase increased [Not Recovered/Not Resolved]
  - Platelet count decreased [Not Recovered/Not Resolved]

NARRATIVE: CASE EVENT DATE: 20150130
